FAERS Safety Report 7804239-4 (Version None)
Quarter: 2011Q4

REPORT INFORMATION
  Report Type: 
  Country: None (occurrence: None)
  Receive Date: 20111010
  Receipt Date: 20110928
  Transmission Date: 20120403
  Serious: Yes (Hospitalization, Other)
  Sender: FDA-Public Use
  Company Number: PHFR2011GB01980

PATIENT
  Sex: Male
  Weight: 65 kg

DRUGS (4)
  1. CLOZAPINE [Suspect]
     Indication: SCHIZOPHRENIA, PARANOID TYPE
     Dosage: 200 MG/ MORNING AND 300MG/ NIGHT
     Route: 048
     Dates: start: 20080513
  2. SIMVASTATIN [Concomitant]
     Indication: CARDIAC DISORDER
     Route: 048
     Dates: start: 20050101
  3. PROPRANOLOL [Concomitant]
     Indication: CARDIAC DISORDER
     Route: 048
     Dates: start: 20060101
  4. TRIHEXYPHENIDYL HCL [Concomitant]
     Indication: EXTRAPYRAMIDAL DISORDER
     Dosage: 15 MG
     Route: 048
     Dates: start: 20110307

REACTIONS (6)
  - GALLBLADDER PERFORATION [None]
  - SALIVARY HYPERSECRETION [None]
  - PLATELET COUNT INCREASED [None]
  - CHOLECYSTITIS [None]
  - INFECTIOUS PERITONITIS [None]
  - FAECALOMA [None]
